FAERS Safety Report 8575496-4 (Version None)
Quarter: 2012Q3

REPORT INFORMATION
  Report Type: 
  Country: None (occurrence: None)
  Receive Date: 20120807
  Receipt Date: 20120731
  Transmission Date: 20120928
  Serious: Yes (Hospitalization)
  Sender: FDA-Public Use
  Company Number: JP-ELI_LILLY_AND_COMPANY-JP201205008734

PATIENT
  Age: 80 Year
  Sex: Female

DRUGS (1)
  1. FORTEO [Suspect]
     Dosage: UNK
     Route: 058
     Dates: start: 20110730

REACTIONS (5)
  - WEIGHT INCREASED [None]
  - BLOOD ALKALINE PHOSPHATASE INCREASED [None]
  - N-TELOPEPTIDE URINE INCREASED [None]
  - HOSPITALISATION [None]
  - INCREASED APPETITE [None]
